FAERS Safety Report 24166002 (Version 1)
Quarter: 2024Q3

REPORT INFORMATION
  Report Type: Spontaneous
  Country: US (occurrence: US)
  Receive Date: 20240802
  Receipt Date: 20240802
  Transmission Date: 20241016
  Serious: No
  Sender: ACCORD
  Company Number: US-Accord-424759

PATIENT
  Sex: Female

DRUGS (1)
  1. DOCETAXEL [Suspect]
     Active Substance: DOCETAXEL\DOCETAXEL ANHYDROUS
     Indication: Product used for unknown indication
     Dosage: DOCETAXEL INJECTION CONCENTRATE, APPROXIMATELY FROM 01-MAY-2019 TO 17-JUL-2019

REACTIONS (1)
  - Lacrimal structure injury [Unknown]
